FAERS Safety Report 8369449-9 (Version None)
Quarter: 2012Q2

REPORT INFORMATION
  Report Type: 
  Country: None (occurrence: None)
  Receive Date: 20120517
  Receipt Date: 20120517
  Transmission Date: 20120825
  Serious: Yes (Life-Threatening)
  Sender: FDA-Public Use
  Company Number: None

PATIENT
  Sex: Female
  Weight: 112.0385 kg

DRUGS (1)
  1. SERTRALINE HYDROCHLORIDE [Suspect]
     Dosage: 1 TABLET EVERY MOR. EVERY DAY 057228419325 2 WKS AFTER TAKING

REACTIONS (16)
  - NAUSEA [None]
  - TREMOR [None]
  - MUSCLE TWITCHING [None]
  - MUSCLE SPASMS [None]
  - SOMNOLENCE [None]
  - INCREASED APPETITE [None]
  - ASTHENIA [None]
  - VOMITING [None]
  - VISION BLURRED [None]
  - ABDOMINAL DISCOMFORT [None]
  - DIZZINESS [None]
  - VISUAL IMPAIRMENT [None]
  - HYPERHIDROSIS [None]
  - HEART RATE INCREASED [None]
  - DYSPNOEA [None]
  - DIARRHOEA [None]
